FAERS Safety Report 6904289-6 (Version None)
Quarter: 2010Q3

REPORT INFORMATION
  Report Type: 
  Country: None (occurrence: None)
  Receive Date: 20100804
  Receipt Date: 20090420
  Transmission Date: 20110219
  Serious: No
  Sender: FDA-Public Use
  Company Number: US-PFIZER INC-2009183863

PATIENT
  Sex: Male
  Weight: 89.4 kg

DRUGS (11)
  1. LYRICA [Suspect]
     Indication: PAIN
     Dosage: 25 MG, 1X/DAY
     Dates: start: 20090310
  2. KLONOPIN [Concomitant]
     Dosage: 0.5 MG, 2X/DAY
  3. ZYPREXA [Concomitant]
     Dosage: UNK
  4. ARTANE [Concomitant]
     Dosage: UNK
  5. DEPAKOTE [Concomitant]
     Dosage: UNK
  6. QVAR 40 [Concomitant]
     Dosage: UNK
  7. SENNA [Concomitant]
     Indication: CONSTIPATION
     Dosage: UNK
  8. MULTI-VITAMINS [Concomitant]
     Dosage: UNK
  9. FIBRE, DIETARY [Concomitant]
     Dosage: UNK
  10. OPHTHALMOLOGICALS [Concomitant]
     Dosage: UNK
  11. ALL OTHER THERAPEUTIC PRODUCTS [Concomitant]
     Dosage: UNK

REACTIONS (4)
  - ABNORMAL BEHAVIOUR [None]
  - FATIGUE [None]
  - NEGATIVE THOUGHTS [None]
  - SOMNOLENCE [None]
